FAERS Safety Report 5210622-6 (Version None)
Quarter: 2006Q4

REPORT INFORMATION
  Report Type: 
  Country: None (occurrence: None)
  Receive Date: 20061106
  Receipt Date: 20060914
  Transmission Date: 20070319
  Serious: No
  Sender: FDA-Public Use
  Company Number: VNL_0214_2006

PATIENT
  Age: 67 Year
  Sex: Male
  Weight: 81.6475 kg

DRUGS (5)
  1. APOKYN [Suspect]
     Indication: PARKINSON'S DISEASE
     Dosage: 0.6 MG TID SC
     Route: 058
     Dates: start: 20060701, end: 20060101
  2. APOKYN [Suspect]
     Indication: PARKINSON'S DISEASE
     Dosage: 0.4 ML TID SC
     Route: 058
     Dates: start: 20060101
  3. SINEMET [Concomitant]
  4. MIRAPEX [Concomitant]
  5. COMTAN [Concomitant]

REACTIONS (2)
  - FEELING ABNORMAL [None]
  - MUSCLE SPASMS [None]
